FAERS Safety Report 5464066-2 (Version None)
Quarter: 2007Q3

REPORT INFORMATION
  Report Type: 
  Country: None (occurrence: None)
  Receive Date: 20070921
  Receipt Date: 20070911
  Transmission Date: 20080115
  Serious: Yes (Hospitalization, Disabling)
  Sender: FDA-Public Use
  Company Number: ZA-ASTRAZENECA-2007SE04843

PATIENT
  Age: 28007 Day
  Sex: Female
  Weight: 81 kg

DRUGS (5)
  1. ROSUVASTATIN [Suspect]
     Indication: CARDIOVASCULAR EVENT PROPHYLAXIS
     Route: 048
     Dates: start: 20060911
  2. STUDY PROCEDURE [Suspect]
  3. HYDROCHLOROTHIAZIDE [Concomitant]
     Route: 048
     Dates: start: 20050104
  4. ENALAPRIL MALEATE [Concomitant]
     Route: 048
     Dates: start: 20051007
  5. ADALAT CC [Concomitant]
     Route: 048

REACTIONS (1)
  - INTERSTITIAL LUNG DISEASE [None]
